FAERS Safety Report 9961755 (Version 1)
Quarter: 2014Q1

REPORT INFORMATION
  Report Type: Report from Study
  Country: US (occurrence: US)
  Receive Date: 20140305
  Receipt Date: 20140305
  Transmission Date: 20141002
  Serious: No
  Sender: FDA-Public Use
  Company Number: US-ABBVIE-13P-163-1113307-00

PATIENT
  Sex: Male

DRUGS (4)
  1. HUMIRA [Suspect]
     Indication: CROHN^S DISEASE
     Dates: start: 20121108
  2. LOSARTAN [Concomitant]
     Indication: HYPERTENSION
     Dosage: 50MG DAILY
  3. TRILIPIX [Concomitant]
     Indication: BLOOD TRIGLYCERIDES INCREASED
  4. FLOMAX [Concomitant]
     Indication: URINARY TRACT DISORDER

REACTIONS (1)
  - Rash pruritic [Not Recovered/Not Resolved]
